FAERS Safety Report 21766093 (Version 1)
Quarter: 2022Q4

REPORT INFORMATION
  Report Type: Spontaneous
  Country: FR (occurrence: FR)
  Receive Date: 20221222
  Receipt Date: 20221222
  Transmission Date: 20230113
  Serious: Yes (Disabling)
  Sender: FDA-Public Use
  Company Number: None

PATIENT
  Age: 44 Year
  Sex: Female
  Weight: 48 kg

DRUGS (7)
  1. QUETIAPINE [Suspect]
     Active Substance: QUETIAPINE
     Indication: Depression
     Dosage: 50 MILLIGRAM, QD
     Route: 048
  2. DULOXETINE [Suspect]
     Active Substance: DULOXETINE
     Indication: Depression
     Dosage: 90 MILLIGRAM, QD
     Route: 048
  3. DIAZEPAM [Suspect]
     Active Substance: DIAZEPAM
     Indication: Anxiety
     Dosage: 10 MILLIGRAM, QD (0.5 TO 1 TABLET MORE IF NEEDED)
     Route: 048
  4. CYAMEMAZINE [Suspect]
     Active Substance: CYAMEMAZINE
     Indication: Mixed anxiety and depressive disorder
     Dosage: 25 MILLIGRAM, QD
     Route: 048
  5. SPRAVATO [Suspect]
     Active Substance: ESKETAMINE
     Indication: Depression
     Dosage: 112 MILLIGRAM, QW
     Route: 045
     Dates: start: 20220124, end: 20220217
  6. SPRAVATO [Suspect]
     Active Substance: ESKETAMINE
     Dosage: 84 MILLIGRAM, QW
     Route: 045
     Dates: start: 20220221, end: 20220321
  7. SPRAVATO [Suspect]
     Active Substance: ESKETAMINE
     Dosage: 84 MILLIGRAM
     Route: 045
     Dates: start: 20220405, end: 20220502

REACTIONS (1)
  - Myalgia [Not Recovered/Not Resolved]

NARRATIVE: CASE EVENT DATE: 20220401
